FAERS Safety Report 6991413-2 (Version None)
Quarter: 2010Q3

REPORT INFORMATION
  Report Type: 
  Country: None (occurrence: None)
  Receive Date: 20100916
  Receipt Date: 20090821
  Transmission Date: 20110219
  Serious: No
  Sender: FDA-Public Use
  Company Number: US-WYE-H10694809

PATIENT
  Age: 60 Year
  Sex: Male
  Weight: 68.1 kg

DRUGS (1)
  1. ADVIL PM [Suspect]
     Indication: INSOMNIA
     Dosage: 1 CAPLET  TWICE
     Route: 048
     Dates: start: 20090701, end: 20090818

REACTIONS (1)
  - NIGHTMARE [None]
